FAERS Safety Report 13839262 (Version 2)
Quarter: 2017Q3

REPORT INFORMATION
  Report Type: Report from Study
  Country: DE (occurrence: DE)
  Receive Date: 20170807
  Receipt Date: 20170815
  Transmission Date: 20171127
  Serious: Yes (Death, Hospitalization, Other)
  Sender: FDA-Public Use
  Company Number: DE-BRISTOL-MYERS SQUIBB COMPANY-BMS-2015-006142

PATIENT
  Age: 89 Year
  Sex: Female
  Weight: 45 kg

DRUGS (3)
  1. DASATINIB [Suspect]
     Active Substance: DASATINIB
     Indication: CHRONIC MYELOID LEUKAEMIA
     Dosage: 100 MG, QD
     Route: 065
     Dates: start: 20150114, end: 20150117
  2. BISOPROLOL                         /00802602/ [Concomitant]
     Active Substance: BISOPROLOL
     Indication: HYPERTENSION
     Route: 065
  3. CANDESARTAN                        /01349502/ [Concomitant]
     Active Substance: CANDESARTAN
     Indication: HYPERTENSION
     Route: 065

REACTIONS (2)
  - Cardiac arrest [Fatal]
  - Renal failure [Fatal]

NARRATIVE: CASE EVENT DATE: 20150122
